FAERS Safety Report 11297231 (Version 1)
Quarter: 2015Q3

REPORT INFORMATION
  Report Type: Spontaneous
  Country: US (occurrence: US)
  Receive Date: 20150722
  Receipt Date: 20150722
  Transmission Date: 20151125
  Serious: No
  Sender: FDA-Public Use
  Company Number: US-ELI_LILLY_AND_COMPANY-US201103006560

PATIENT
  Age: 65 Year
  Sex: Female

DRUGS (1)
  1. EVISTA [Suspect]
     Active Substance: RALOXIFENE HYDROCHLORIDE
     Indication: OSTEOPOROSIS
     Dosage: 60 MG, QD
     Dates: end: 20110308

REACTIONS (6)
  - Fatigue [Unknown]
  - Pain in extremity [Unknown]
  - Nonspecific reaction [Unknown]
  - Poor quality sleep [Unknown]
  - Malaise [Unknown]
  - Breast tenderness [Unknown]

NARRATIVE: CASE EVENT DATE: 201103
